FAERS Safety Report 17740008 (Version 1)
Quarter: 2020Q2

REPORT INFORMATION
  Report Type: Spontaneous
  Country: FR (occurrence: FR)
  Receive Date: 20200504
  Receipt Date: 20200504
  Transmission Date: 20200714
  Serious: Yes (Hospitalization, Disabling)
  Sender: FDA-Public Use
  Company Number: FR-ACCORD-180724

PATIENT
  Age: 34 Year
  Sex: Female

DRUGS (3)
  1. CLOZAPINE. [Suspect]
     Active Substance: CLOZAPINE
     Indication: MENTAL DISORDER
     Route: 048
     Dates: start: 20200313
  2. PHENERGAN [Suspect]
     Active Substance: PROMETHAZINE HYDROCHLORIDE
     Indication: MENTAL DISORDER
     Dosage: STRENGTH: 25 MG
     Route: 048
     Dates: start: 20200313
  3. LOXAPAC [Suspect]
     Active Substance: LOXAPINE
     Indication: MENTAL DISORDER
     Route: 048
     Dates: start: 20200310

REACTIONS (2)
  - Intestinal obstruction [Recovered/Resolved with Sequelae]
  - Colectomy [Recovered/Resolved with Sequelae]

NARRATIVE: CASE EVENT DATE: 202003
